FAERS Safety Report 6413373-5 (Version None)
Quarter: 2009Q4

REPORT INFORMATION
  Report Type: 
  Country: None (occurrence: None)
  Receive Date: 20091026
  Receipt Date: 20091021
  Transmission Date: 20100525
  Serious: Yes (Death)
  Sender: FDA-Public Use
  Company Number: FI-BRISTOL-MYERS SQUIBB COMPANY-14771125

PATIENT
  Age: 54 Year
  Sex: Male

DRUGS (7)
  1. ORENCIA [Suspect]
     Indication: RHEUMATOID ARTHRITIS
     Dates: start: 20090422, end: 20090720
  2. METHOTREXATE [Concomitant]
  3. OXIKLORIN [Concomitant]
     Dosage: 30MG * 1
  4. REUMACON [Concomitant]
     Dosage: 4 DF = 4 UNIT NOS
  5. PREDNISOLONE [Concomitant]
     Dosage: 5MG * 1
  6. VITAMINS NOS [Concomitant]
  7. IBUPROFEN [Concomitant]

REACTIONS (1)
  - ROAD TRAFFIC ACCIDENT [None]
